FAERS Safety Report 19836962 (Version 4)
Quarter: 2021Q4

REPORT INFORMATION
  Report Type: Spontaneous
  Country: US (occurrence: US)
  Receive Date: 20210914
  Receipt Date: 20211015
  Transmission Date: 20220303
  Serious: Yes (Other)
  Sender: FDA-Public Use
  Company Number: US-ALLERGAN-2132051US

PATIENT
  Sex: Female
  Weight: 92.9 kg

DRUGS (2)
  1. INFED [Suspect]
     Active Substance: IRON DEXTRAN
     Indication: Iron deficiency anaemia
     Dosage: ACTUAL: 5 MG VIA SLOW IV PUSH, TEST DOSE
     Route: 041
     Dates: start: 20210818, end: 20210818
  2. IBUPROFEN [Concomitant]
     Active Substance: IBUPROFEN
     Indication: Pain
     Dosage: 200 MG, PRN

REACTIONS (6)
  - Clonus [Recovered/Resolved]
  - Back pain [Recovered/Resolved]
  - Hyperhidrosis [Unknown]
  - Blood pressure increased [Unknown]
  - Pregnancy [Unknown]
  - Flushing [Recovered/Resolved]

NARRATIVE: CASE EVENT DATE: 20210818
